FAERS Safety Report 15772873 (Version 1)
Quarter: 2018Q4

REPORT INFORMATION
  Report Type: Spontaneous
  Country: GB (occurrence: GB)
  Receive Date: 20181228
  Receipt Date: 20181228
  Transmission Date: 20190205
  Serious: Yes (Other)
  Sender: FDA-Public Use
  Company Number: GB-SHIRE-GB201822766

PATIENT

DRUGS (1)
  1. 476 (MESALAZINE/MESALAMINE) [Suspect]
     Active Substance: MESALAMINE
     Indication: COLITIS ULCERATIVE
     Dosage: 1000 MG, 3X/DAY:TID
     Route: 048

REACTIONS (6)
  - Colitis ulcerative [Unknown]
  - Dry mouth [Unknown]
  - Liver disorder [Unknown]
  - Oropharyngeal pain [Unknown]
  - Haematochezia [Unknown]
  - Cystitis [Unknown]

NARRATIVE: CASE EVENT DATE: 20180901
